FAERS Safety Report 5321169-0 (Version None)
Quarter: 2007Q2

REPORT INFORMATION
  Report Type: 
  Country: None (occurrence: None)
  Receive Date: 20070507
  Receipt Date: 20070507
  Transmission Date: 20071010
  Serious: Yes (Life-Threatening)
  Sender: FDA-Public Use
  Company Number: None

PATIENT
  Age: 64 Year
  Sex: Male
  Weight: 87 kg

DRUGS (1)
  1. OMALIZUMAB [Suspect]
     Indication: ASTHMA
     Dosage: 225 MG   ONCE   SQ
     Route: 058
     Dates: start: 20070418, end: 20070418

REACTIONS (3)
  - DRY MOUTH [None]
  - TACHYCARDIA [None]
  - WHEEZING [None]
